FAERS Safety Report 13882603 (Version 2)
Quarter: 2017Q3

REPORT INFORMATION
  Report Type: Spontaneous
  Country: ES (occurrence: ES)
  Receive Date: 20170818
  Receipt Date: 20170912
  Transmission Date: 20171127
  Serious: Yes (Hospitalization)
  Sender: FDA-Public Use
  Company Number: ES-NOVOPROD-557972

PATIENT
  Age: 59 Year
  Sex: Female

DRUGS (3)
  1. NOVORAPID [Suspect]
     Active Substance: INSULIN ASPART
     Indication: TYPE 1 DIABETES MELLITUS
     Dosage: 30 U, QD
     Route: 058
     Dates: start: 201704
  2. NOVORAPID [Suspect]
     Active Substance: INSULIN ASPART
     Dosage: 30 U, QD
     Route: 058
     Dates: start: 20170803
  3. NOVORAPID [Suspect]
     Active Substance: INSULIN ASPART
     Dosage: 30 U, QD
     Route: 058

REACTIONS (3)
  - Product container issue [Unknown]
  - Product leakage [Unknown]
  - Diabetic ketoacidosis [Recovered/Resolved]

NARRATIVE: CASE EVENT DATE: 20170804
